FAERS Safety Report 9571322 (Version 1)
Quarter: 2013Q1

REPORT INFORMATION
  Report Type: Spontaneous
  Country: US (occurrence: None)
  Receive Date: 20120510
  Receipt Date: 20120510
  Transmission Date: 20140127
  Serious: Yes (Other)
  Sender: FDA-Public Use
  Company Number: PHEH2008US08864

PATIENT
  Age: 22 Year
  Sex: Female
  Weight: 63.5 kg

DRUGS (1)
  1. ZELNORM [Suspect]
     Dates: start: 20030101, end: 20041201

REACTIONS (1)
  - Chest pain [None]
